FAERS Safety Report 25549470 (Version 1)
Quarter: 2025Q3

REPORT INFORMATION
  Report Type: Spontaneous
  Country: US (occurrence: None)
  Receive Date: 20250713
  Receipt Date: 20250713
  Transmission Date: 20251021
  Serious: Yes (Hospitalization)
  Sender: FDA-CTU
  Company Number: None

PATIENT
  Age: 8 Year
  Sex: Female

DRUGS (3)
  1. SIMPONI ARIA [Suspect]
     Active Substance: GOLIMUMAB
     Dosage: FREQUENCY : EVERY OTHER WEEK;?
     Route: 058
  2. RINVOQ [Suspect]
     Active Substance: UPADACITINIB
  3. HUMIRA [Suspect]
     Active Substance: ADALIMUMAB

REACTIONS (5)
  - Ear infection [None]
  - Scarlet fever [None]
  - Abscess [None]
  - Treatment failure [None]
  - Pustular psoriasis [None]
